FAERS Safety Report 15329741 (Version 6)
Quarter: 2018Q4

REPORT INFORMATION
  Report Type: Report from Study
  Country: US (occurrence: US)
  Receive Date: 20180829
  Receipt Date: 20181212
  Transmission Date: 20190204
  Serious: Yes (Other)
  Sender: FDA-Public Use
  Company Number: US-PFIZER INC-2018321992

PATIENT
  Age: 83 Year
  Sex: Female

DRUGS (2)
  1. IBRANCE [Suspect]
     Active Substance: PALBOCICLIB
     Indication: BREAST CANCER
     Dosage: 125 MG, CYCLIC (DAILY - 21 ON, 7 OFF)
     Route: 048
     Dates: start: 20180803
  2. IBRANCE [Suspect]
     Active Substance: PALBOCICLIB
     Dosage: 100 MG, CYCLIC (DAILY FOR 21 DAYS ON, 7 DAYS OFF)
     Route: 048
     Dates: start: 20180831, end: 20181019

REACTIONS (13)
  - Bone marrow failure [Unknown]
  - Flatulence [Unknown]
  - Weight decreased [Unknown]
  - Epistaxis [Recovered/Resolved]
  - Constipation [Unknown]
  - Oropharyngeal pain [Recovered/Resolved]
  - Fatigue [Unknown]
  - Sleep disorder [Unknown]
  - Leukopenia [Unknown]
  - Lip pain [Unknown]
  - Dysphagia [Recovered/Resolved]
  - Decreased appetite [Unknown]
  - Dyspnoea exertional [Unknown]

NARRATIVE: CASE EVENT DATE: 2018
